FAERS Safety Report 5443950-X (Version None)
Quarter: 2007Q3

REPORT INFORMATION
  Report Type: 
  Country: None (occurrence: None)
  Receive Date: 20070831
  Receipt Date: 20070817
  Transmission Date: 20080115
  Serious: Yes (Hospitalization)
  Sender: FDA-Public Use
  Company Number: 000#5#2005-00093

PATIENT
  Age: 71 Year
  Sex: Female
  Weight: 86.637 kg

DRUGS (17)
  1. NEUPRO [Suspect]
     Dosage: 10MG/24H,1 IN 1 D, TRANSDERMAL
     Route: 062
     Dates: start: 20021126
  2. ROTIGOTINE-TRIAL [Concomitant]
  3. VALDECOXIB [Concomitant]
  4. AMITRIPTYLINE HCL [Concomitant]
  5. AMLODIPINE [Concomitant]
  6. METHYLPREDNISOLONE 16MG TAB [Concomitant]
  7. ROFECOXIB [Concomitant]
  8. CARBIDOPA AND LEVODOPA [Concomitant]
  9. OXYCODONE HYDROCHLORIDE, OXYCODONE TEREPHTHALATE, PARACETAM [Concomitant]
  10. WARFARIN SODIUM [Concomitant]
  11. ASPIRIN [Concomitant]
  12. ZOLPIDEM TARTRATE [Concomitant]
  13. FUROSEMIDE [Concomitant]
  14. AMLODIPINE BESILATE, ATORVASTATIN CALCIUM [Concomitant]
  15. ATORVASTATIN CALCIUM [Concomitant]
  16. GLIMEPIRIDE [Concomitant]
  17. ASPIRIN [Concomitant]

REACTIONS (9)
  - ARTHRALGIA [None]
  - CONDITION AGGRAVATED [None]
  - DYSPHAGIA [None]
  - GLUCOSE TOLERANCE IMPAIRED [None]
  - HAEMATOCRIT DECREASED [None]
  - HAEMOGLOBIN DECREASED [None]
  - HEPATIC NEOPLASM MALIGNANT [None]
  - PARKINSON'S DISEASE [None]
  - WHITE BLOOD CELL COUNT INCREASED [None]
